FAERS Safety Report 17610567 (Version 5)
Quarter: 2021Q1

REPORT INFORMATION
  Report Type: Spontaneous
  Country: US (occurrence: US)
  Receive Date: 20200401
  Receipt Date: 20210120
  Transmission Date: 20210419
  Serious: Yes (Hospitalization, Other)
  Sender: FDA-Public Use
  Company Number: US-PFIZER INC-2020134316

PATIENT
  Age: 87 Year
  Sex: Female

DRUGS (1)
  1. XELJANZ XR [Suspect]
     Active Substance: TOFACITINIB CITRATE
     Indication: RHEUMATOID ARTHRITIS
     Dosage: 11 MG, DAILY
     Route: 048
     Dates: start: 201906

REACTIONS (16)
  - Pneumonia [Unknown]
  - Productive cough [Not Recovered/Not Resolved]
  - Cough [Unknown]
  - Suspected COVID-19 [Unknown]
  - White blood cell count increased [Unknown]
  - Discouragement [Unknown]
  - Renal impairment [Unknown]
  - Wheezing [Unknown]
  - Swelling [Unknown]
  - Fluid retention [Unknown]
  - Asthenia [Not Recovered/Not Resolved]
  - Back pain [Not Recovered/Not Resolved]
  - Depressed mood [Unknown]
  - Blood creatine increased [Unknown]
  - Dyspnoea [Unknown]
  - Lung disorder [Unknown]
